FAERS Safety Report 7481451-8 (Version None)
Quarter: 2011Q2

REPORT INFORMATION
  Report Type: 
  Country: None (occurrence: None)
  Receive Date: 20110516
  Receipt Date: 20110419
  Transmission Date: 20111010
  Serious: Yes (Hospitalization)
  Sender: FDA-Public Use
  Company Number: FR-JNJFOC-20101207967

PATIENT
  Sex: Male

DRUGS (8)
  1. PREVISCAN (FLUINDIONE) [Interacting]
     Indication: ATRIAL FIBRILLATION
     Route: 048
     Dates: end: 20101116
  2. CAFFEINE/DEXTROPROPOXYPHENE/PARACETAMOL [Concomitant]
     Route: 065
     Dates: end: 20101116
  3. TRAMADOL HCL [Suspect]
     Indication: HEADACHE
     Route: 048
     Dates: start: 20101115, end: 20101116
  4. IBUPROFEN [Suspect]
     Indication: PAIN
     Route: 048
     Dates: end: 20101116
  5. FLECAINIDE ACETATE [Concomitant]
     Route: 065
     Dates: end: 20101116
  6. MIOREL [Concomitant]
     Route: 065
     Dates: end: 20101116
  7. MOTILIUM [Suspect]
     Indication: NAUSEA
     Dates: start: 20101115, end: 20101116
  8. ZOPICLONE [Concomitant]
     Route: 065
     Dates: end: 20101124

REACTIONS (3)
  - DRUG INTERACTION [None]
  - SUBDURAL HAEMATOMA [None]
  - INTERNATIONAL NORMALISED RATIO INCREASED [None]
